FAERS Safety Report 9008031 (Version 2)
Quarter: 2013Q1

REPORT INFORMATION
  Report Type: Spontaneous
  Country: US (occurrence: US)
  Receive Date: 20130110
  Receipt Date: 20130207
  Transmission Date: 20140127
  Serious: Yes (Other)
  Sender: FDA-Public Use
  Company Number: US-AMGEN-USASP2013001075

PATIENT
  Age: 55 Year
  Sex: Male

DRUGS (4)
  1. NEULASTA [Suspect]
     Indication: NEUTROPENIA
     Dosage: UNK UNK, QMO AFTER CHEMOTHERAPY
     Dates: start: 2012
  2. RITUXAN [Concomitant]
     Indication: NON-HODGKIN^S LYMPHOMA
     Dosage: UNK
     Dates: start: 2011
  3. CHEMOTHERAPEUTICS [Concomitant]
     Indication: NON-HODGKIN^S LYMPHOMA
     Dosage: UNK
  4. GLUCOSCAN [Concomitant]
     Indication: DIABETES MELLITUS
     Dosage: 20 G, UNK, 103 IV SALINE LOCK TO RIGHT WRIST
     Route: 042

REACTIONS (6)
  - Syncope [Unknown]
  - Dizziness [Unknown]
  - Nausea [Unknown]
  - Dehydration [Unknown]
  - Vomiting [Unknown]
  - Hyperhidrosis [Unknown]
